FAERS Safety Report 5516067-3 (Version None)
Quarter: 2007Q4

REPORT INFORMATION
  Report Type: 
  Country: None (occurrence: None)
  Receive Date: 20071114
  Receipt Date: 20061129
  Transmission Date: 20080405
  Serious: No
  Sender: FDA-Public Use
  Company Number: A0628949A

PATIENT
  Age: 40 Year
  Sex: Male

DRUGS (1)
  1. COMMIT [Suspect]

REACTIONS (5)
  - ASPIRATION [None]
  - BLOODY DISCHARGE [None]
  - CHEST DISCOMFORT [None]
  - HAEMOPTYSIS [None]
  - PLEURITIC PAIN [None]
